FAERS Safety Report 19143323 (Version 1)
Quarter: 2021Q2

REPORT INFORMATION
  Report Type: Spontaneous
  Country: US (occurrence: US)
  Receive Date: 20210416
  Receipt Date: 20210416
  Transmission Date: 20210717
  Serious: Yes (Hospitalization, Other)
  Sender: FDA-Public Use
  Company Number: US-AMGEN-USASP2021054419

PATIENT

DRUGS (2)
  1. FILGRASTIM [Suspect]
     Active Substance: FILGRASTIM
     Indication: NEUTROPENIA
     Dosage: UNK
     Route: 065
  2. PEGFILGRASTIM [Suspect]
     Active Substance: PEGFILGRASTIM
     Indication: NEUTROPENIA
     Dosage: UNK
     Route: 065

REACTIONS (15)
  - Caesarean section [Unknown]
  - Foetal growth restriction [Unknown]
  - Maternal exposure during pregnancy [Unknown]
  - Preterm premature rupture of membranes [Unknown]
  - Premature labour [Unknown]
  - Shortened cervix [Unknown]
  - Thrombosis [Unknown]
  - Premature delivery [Unknown]
  - Pneumonia mycoplasmal [Unknown]
  - Umbilical cord prolapse [Unknown]
  - Febrile neutropenia [Unknown]
  - Gestational diabetes [Unknown]
  - Uterine atony [Unknown]
  - Amniotic cavity infection [Unknown]
  - Gestational hypertension [Unknown]
